FAERS Safety Report 8956434 (Version 3)
Quarter: 2013Q1

REPORT INFORMATION
  Report Type: Spontaneous
  Country: US (occurrence: US)
  Receive Date: 20121210
  Receipt Date: 20130215
  Transmission Date: 20140127
  Serious: No
  Sender: FDA-Public Use
  Company Number: US-JNJFOC-20121113660

PATIENT
  Age: 34 None
  Sex: Female
  Weight: 83.92 kg

DRUGS (12)
  1. SANDOZ FENTANYL TRANSDERMAL SYSTEM [Suspect]
     Indication: BACK PAIN
     Route: 062
     Dates: start: 20120330, end: 20121202
  2. FENTANYL [Suspect]
     Indication: PRODUCT USED FOR UNKNOWN INDICATION
     Route: 062
  3. ALPRAZOLAM [Concomitant]
     Indication: ANXIETY
     Route: 048
     Dates: start: 2008
  4. CITALOPRAM HBR [Concomitant]
     Indication: DEPRESSION
     Route: 048
     Dates: start: 2008
  5. B 12 [Concomitant]
     Indication: VITAMIN B12 DEFICIENCY
     Route: 030
     Dates: start: 2010
  6. AZATHIOPRINE [Concomitant]
     Indication: CROHN^S DISEASE
     Route: 048
     Dates: start: 2003
  7. PENTASA [Concomitant]
     Indication: CROHN^S DISEASE
     Dosage: TWO 500 MG CAPSULES
     Route: 048
     Dates: start: 2001
  8. KLOR-CON [Concomitant]
     Indication: HYPOKALAEMIA
     Route: 048
     Dates: start: 2008
  9. CYCLOBENZAPRINE [Concomitant]
     Indication: MUSCLE SPASMS
     Route: 048
     Dates: start: 2009
  10. XANAX [Concomitant]
     Indication: ANXIETY
     Route: 065
     Dates: start: 2009
  11. CITALOPRAM [Concomitant]
     Indication: DEPRESSION
     Route: 065
     Dates: start: 2009
  12. AZATHIOPRINE [Concomitant]
     Indication: CROHN^S DISEASE
     Route: 065
     Dates: start: 2006

REACTIONS (6)
  - Product quality issue [Unknown]
  - Poor quality drug administered [Unknown]
  - Wrong technique in drug usage process [Unknown]
  - Inappropriate schedule of drug administration [Unknown]
  - Product adhesion issue [None]
  - Therapy cessation [None]
